FAERS Safety Report 4379156-5 (Version None)
Quarter: 2004Q2

REPORT INFORMATION
  Report Type: 
  Country: None (occurrence: None)
  Receive Date: 20040610
  Receipt Date: 20040528
  Transmission Date: 20050107
  Serious: Yes (Hospitalization)
  Sender: FDA-Public Use
  Company Number: US-JNJFOC-20040400366

PATIENT
  Age: 68 Year
  Sex: Male
  Weight: 94.3482 kg

DRUGS (6)
  1. REMICADE [Suspect]
     Indication: RHEUMATOID ARTHRITIS
     Dosage: 3 MG/KG, INTRAVENOUS
     Route: 042
     Dates: start: 20040325
  2. METHOTREXATE [Concomitant]
  3. VIOXX [Concomitant]
  4. FOLIC ACID [Concomitant]
  5. ALLOPURINAL (ALLOPURINOL) [Concomitant]
  6. MULTIVITAMIN [Concomitant]

REACTIONS (2)
  - ACUTE MYOCARDIAL INFARCTION [None]
  - CORONARY ARTERY OCCLUSION [None]
